FAERS Safety Report 24892718 (Version 3)
Quarter: 2025Q1

REPORT INFORMATION
  Report Type: Spontaneous
  Country: FR (occurrence: FR)
  Receive Date: 20250128
  Receipt Date: 20250317
  Transmission Date: 20250409
  Serious: Yes (Other)
  Sender: ALEXION PHARMACEUTICALS
  Company Number: FR-ASTRAZENECA-202501EEA017864FR

PATIENT
  Age: 19 Year

DRUGS (1)
  1. SOLIRIS [Suspect]
     Active Substance: ECULIZUMAB
     Indication: Atypical haemolytic uraemic syndrome
     Route: 065

REACTIONS (4)
  - Purpura fulminans [Unknown]
  - Septic shock [Unknown]
  - Cardiovascular insufficiency [Unknown]
  - Alopecia [Unknown]
